FAERS Safety Report 5672621-X (Version None)
Quarter: 2008Q1

REPORT INFORMATION
  Report Type: 
  Country: None (occurrence: None)
  Receive Date: 20080319
  Receipt Date: 20080314
  Transmission Date: 20080703
  Serious: Yes (Hospitalization)
  Sender: FDA-Public Use
  Company Number: FR-MERCK-0802FRA00071

PATIENT
  Age: 59 Year
  Sex: Female

DRUGS (13)
  1. EMEND [Suspect]
     Indication: PROPHYLAXIS OF NAUSEA AND VOMITING
     Route: 048
     Dates: start: 20080205, end: 20080205
  2. EMEND [Suspect]
     Route: 048
     Dates: start: 20080206, end: 20080206
  3. EMEND [Suspect]
     Route: 048
     Dates: start: 20080219, end: 20080219
  4. ONDANSETRON HYDROCHLORIDE [Suspect]
     Indication: PROPHYLAXIS OF NAUSEA AND VOMITING
     Route: 042
     Dates: start: 20080205, end: 20080205
  5. ONDANSETRON HYDROCHLORIDE [Suspect]
     Route: 042
     Dates: start: 20080219, end: 20080219
  6. OXALIPLATIN [Suspect]
     Indication: RECTOSIGMOID CANCER
     Route: 042
     Dates: start: 20080205, end: 20080205
  7. OXALIPLATIN [Suspect]
     Route: 042
     Dates: start: 20080219, end: 20080219
  8. DEXAMETHASONE SODIUM PHOSPHATE [Concomitant]
     Indication: PROPHYLAXIS OF NAUSEA AND VOMITING
     Route: 042
     Dates: start: 20080205, end: 20080205
  9. DEXAMETHASONE SODIUM PHOSPHATE [Concomitant]
     Route: 042
     Dates: start: 20080219, end: 20080219
  10. FLUOROURACIL [Concomitant]
     Indication: RECTOSIGMOID CANCER
     Route: 042
     Dates: start: 20080205, end: 20080206
  11. FLUOROURACIL [Concomitant]
     Route: 042
     Dates: start: 20080219, end: 20080220
  12. FOLINIC ACID [Concomitant]
     Route: 065
     Dates: start: 20080205, end: 20080206
  13. FOLINIC ACID [Concomitant]
     Route: 065
     Dates: start: 20080219, end: 20080220

REACTIONS (1)
  - LARYNGEAL DYSPNOEA [None]
